FAERS Safety Report 6682670-0 (Version None)
Quarter: 2010Q2

REPORT INFORMATION
  Report Type: 
  Country: None (occurrence: None)
  Receive Date: 20100415
  Receipt Date: 20080310
  Transmission Date: 20101027
  Serious: Yes (Hospitalization, Other)
  Sender: FDA-Public Use
  Company Number: US-SANOFI-AVENTIS-F01200700286

PATIENT
  Age: 53 Year
  Sex: Female
  Weight: 70.3 kg

DRUGS (7)
  1. OXALIPLATIN [Suspect]
     Indication: OVARIAN CANCER
     Dosage: UNIT DOSE: 85 MG/M2
     Route: 041
     Dates: start: 20070103, end: 20070103
  2. OXALIPLATIN [Suspect]
     Dosage: UNIT DOSE: 85 MG/M2
     Route: 041
     Dates: start: 20060919, end: 20060919
  3. DOCETAXEL [Suspect]
     Indication: OVARIAN CANCER
     Dosage: UNIT DOSE: 75 MG/M2
     Route: 041
     Dates: start: 20070103, end: 20070103
  4. DOCETAXEL [Suspect]
     Dosage: UNIT DOSE: 75 MG/M2
     Route: 041
     Dates: start: 20060919, end: 20060919
  5. BEVACIZUMAB [Suspect]
     Indication: OVARIAN CANCER
     Dosage: UNIT DOSE: 15 MG/KG
     Route: 041
     Dates: start: 20070103, end: 20070103
  6. BEVACIZUMAB [Suspect]
     Dosage: UNIT DOSE: 15 MG/KG
     Route: 041
     Dates: start: 20060919, end: 20060919
  7. OXYCODONE [Concomitant]
     Dosage: DOSE TEXT: 5/325 MG
     Route: 065

REACTIONS (1)
  - WOUND EVISCERATION [None]
